FAERS Safety Report 21622096 (Version 4)
Quarter: 2022Q4

REPORT INFORMATION
  Report Type: Report from Study
  Country: CA (occurrence: CA)
  Receive Date: 20221121
  Receipt Date: 20221213
  Transmission Date: 20230112
  Serious: Yes (Disabling)
  Sender: FDA-Public Use
  Company Number: CA-BRISTOL-MYERS SQUIBB COMPANY-2022-029844

PATIENT
  Age: 67 Year
  Sex: Female
  Weight: 95.45 kg

DRUGS (3)
  1. ORENCIA [Suspect]
     Active Substance: ABATACEPT
     Indication: Rheumatoid arthritis
     Route: 042
     Dates: start: 20160706
  2. ORENCIA [Suspect]
     Active Substance: ABATACEPT
     Route: 042
  3. METHOTREXATE SODIUM [Concomitant]
     Active Substance: METHOTREXATE SODIUM
     Indication: Product used for unknown indication
     Dates: start: 20070101

REACTIONS (11)
  - Gait inability [Unknown]
  - Fatigue [Unknown]
  - Anxiety [Unknown]
  - Respiratory rate increased [Unknown]
  - Oxygen saturation decreased [Unknown]
  - Blood pressure systolic increased [Recovered/Resolved]
  - Prescribed overdose [Unknown]
  - Inappropriate schedule of product administration [Unknown]
  - Bronchitis [Recovered/Resolved]
  - Weight abnormal [Unknown]
  - Malaise [Recovering/Resolving]

NARRATIVE: CASE EVENT DATE: 20220101
